FAERS Safety Report 6174768-0 (Version None)
Quarter: 2009Q2

REPORT INFORMATION
  Report Type: 
  Country: None (occurrence: None)
  Receive Date: 20090430
  Receipt Date: 20080917
  Transmission Date: 20091009
  Serious: No
  Sender: FDA-Public Use
  Company Number: US-ASTRAZENECA-2008UW19309

PATIENT
  Age: 55 Year
  Sex: Female
  Weight: 50.8 kg

DRUGS (4)
  1. NEXIUM [Suspect]
     Indication: GASTROOESOPHAGEAL REFLUX DISEASE
     Route: 048
     Dates: start: 20080201, end: 20080601
  2. NEXIUM [Suspect]
     Route: 048
     Dates: start: 20080601
  3. PEMPRO [Concomitant]
  4. MULTI-VITAMINS [Concomitant]

REACTIONS (5)
  - CHEST DISCOMFORT [None]
  - GASTRITIS [None]
  - MUSCULOSKELETAL PAIN [None]
  - NECK PAIN [None]
  - OROPHARYNGEAL PAIN [None]
